FAERS Safety Report 4560277-9 (Version None)
Quarter: 2005Q1

REPORT INFORMATION
  Report Type: 
  Country: None (occurrence: None)
  Receive Date: 20050125
  Receipt Date: 20041124
  Transmission Date: 20050727
  Serious: Yes (Hospitalization, Other)
  Sender: FDA-Public Use
  Company Number: IT-NOVOPROD-240730

PATIENT
  Age: 82 Year
  Sex: Female
  Weight: 81 kg

DRUGS (7)
  1. VAGIFEM [Suspect]
     Indication: VAGINITIS ATROPHIC
     Dosage: .025 MG, SINGLE
     Route: 067
     Dates: start: 20020101, end: 20020101
  2. LOPRESSOR [Concomitant]
     Indication: HYPERTENSION
     Route: 048
  3. ASPIRIN [Concomitant]
     Indication: CEREBROVASCULAR ACCIDENT
     Route: 048
  4. PREVACID [Concomitant]
     Indication: GASTROOESOPHAGEAL REFLUX DISEASE
     Route: 048
  5. ZETIA [Concomitant]
     Indication: BLOOD CHOLESTEROL INCREASED
     Route: 048
  6. MYCELEX [Concomitant]
     Indication: FUNGAL INFECTION
     Route: 067
  7. COZAAR [Concomitant]
     Indication: HYPERTENSION
     Route: 048

REACTIONS (1)
  - VULVAL CANCER [None]
